FAERS Safety Report 23541305 (Version 1)
Quarter: 2024Q1

REPORT INFORMATION
  Report Type: Spontaneous
  Country: US (occurrence: US)
  Receive Date: 20240219
  Receipt Date: 20240219
  Transmission Date: 20240409
  Serious: No
  Sender: FDA-Public Use
  Company Number: US-Stemline Therapeutics, Inc.-2024ST000632

PATIENT
  Age: 64 Year
  Sex: Female

DRUGS (1)
  1. ORSERDU [Suspect]
     Active Substance: ELACESTRANT
     Indication: Product used for unknown indication
     Route: 048
     Dates: start: 20231121

REACTIONS (7)
  - Fall [Unknown]
  - Depression [Unknown]
  - Mood swings [Unknown]
  - Taste disorder [Unknown]
  - Dry mouth [Unknown]
  - Inappropriate schedule of product administration [Unknown]
  - Neoplasm progression [Unknown]
